FAERS Safety Report 19962819 (Version 1)
Quarter: 2021Q4

REPORT INFORMATION
  Report Type: Spontaneous
  Country: US (occurrence: US)
  Receive Date: 20211015
  Receipt Date: 20211015
  Transmission Date: 20220303
  Serious: No
  Sender: FDA-Public Use
  Company Number: None

PATIENT
  Age: 61 Year
  Sex: Female
  Weight: 110.25 kg

DRUGS (1)
  1. REGEN-COV [Suspect]
     Active Substance: CASIRIVIMAB\IMDEVIMAB
     Dates: start: 20211015, end: 20211015

REACTIONS (5)
  - Urticaria [None]
  - Pruritus [None]
  - Injection site warmth [None]
  - Injection site discolouration [None]
  - Back pain [None]

NARRATIVE: CASE EVENT DATE: 20211015
